FAERS Safety Report 7754190 (Version 4)
Quarter: 2015Q3

REPORT INFORMATION
  Report Type: Spontaneous
  Country: FR (occurrence: FR)
  Receive Date: 20110110
  Receipt Date: 20150731
  Transmission Date: 20151125
  Serious: Yes (Congenital Anomaly, Other)
  Sender: FDA-Public Use
  Company Number: PHHY2010FR90142

PATIENT
  Age: 1 Year
  Sex: Female

DRUGS (1)
  1. GLIVEC [Suspect]
     Active Substance: IMATINIB MESYLATE
     Indication: FOETAL EXPOSURE DURING PREGNANCY
     Dosage: FETAL DRUG EXPOSURE VIA FATHER
     Route: 050

REACTIONS (5)
  - Exposure via father [Unknown]
  - Congenital hydronephrosis [Not Recovered/Not Resolved]
  - Pyelonephritis acute [Not Recovered/Not Resolved]
  - Pelvi-ureteric obstruction [Unknown]
  - Ear infection [Unknown]

NARRATIVE: CASE EVENT DATE: 201010
